FAERS Safety Report 24791104 (Version 1)
Quarter: 2024Q4

REPORT INFORMATION
  Report Type: Report from Study
  Country: US (occurrence: US)
  Receive Date: 20241230
  Receipt Date: 20241230
  Transmission Date: 20250114
  Serious: Yes (Other)
  Sender: ABBVIE
  Company Number: US-ABBVIE-6065687

PATIENT
  Age: 35 Year
  Sex: Female

DRUGS (2)
  1. CREON [Suspect]
     Active Substance: PANCRELIPASE AMYLASE\PANCRELIPASE LIPASE\PANCRELIPASE PROTEASE
     Indication: Product used for unknown indication
     Route: 048
     Dates: start: 19990201
  2. CREON [Suspect]
     Active Substance: PANCRELIPASE AMYLASE\PANCRELIPASE LIPASE\PANCRELIPASE PROTEASE
     Indication: Product used for unknown indication
     Dosage: DOSE INCREASED
     Route: 048
     Dates: start: 2023

REACTIONS (4)
  - Pancreatic duct stenosis [Unknown]
  - Pancreatitis chronic [Unknown]
  - Pancreatic leak [Unknown]
  - Unevaluable event [Unknown]

NARRATIVE: CASE EVENT DATE: 19990101
